FAERS Safety Report 19081555 (Version 2)
Quarter: 2021Q2

REPORT INFORMATION
  Report Type: Spontaneous
  Country: US (occurrence: US)
  Receive Date: 20210401
  Receipt Date: 20210428
  Transmission Date: 20210717
  Serious: No
  Sender: FDA-Public Use
  Company Number: US-GLAXOSMITHKLINE-US2021069910

PATIENT
  Sex: Female

DRUGS (3)
  1. VENTOLIN HFA [Suspect]
     Active Substance: ALBUTEROL SULFATE
  2. VENTOLIN HFA [Suspect]
     Active Substance: ALBUTEROL SULFATE
     Indication: CHRONIC OBSTRUCTIVE PULMONARY DISEASE
     Dosage: 2 PUFF(S)
     Route: 055
  3. VENTOLIN HFA [Suspect]
     Active Substance: ALBUTEROL SULFATE
     Indication: CHRONIC OBSTRUCTIVE PULMONARY DISEASE
     Dosage: 2 PUFF(S)
     Route: 055

REACTIONS (9)
  - Cardiomegaly [Unknown]
  - Wrong technique in product usage process [Unknown]
  - Blood iron decreased [Unknown]
  - Dyspnoea [Recovered/Resolved]
  - Device use error [Unknown]
  - Product complaint [Unknown]
  - Red blood cell count decreased [Unknown]
  - Extra dose administered [Unknown]
  - Product dose omission issue [Unknown]
